FAERS Safety Report 6048808-3 (Version None)
Quarter: 2009Q1

REPORT INFORMATION
  Report Type: 
  Country: None (occurrence: None)
  Receive Date: 20090123
  Receipt Date: 20090112
  Transmission Date: 20090719
  Serious: Yes (Hospitalization, Other)
  Sender: FDA-Public Use
  Company Number: US-MERCK-0807USA00244

PATIENT
  Age: 63 Year
  Sex: Female
  Weight: 73 kg

DRUGS (3)
  1. FOSAMAX [Suspect]
     Indication: OSTEOPOROSIS
     Route: 048
     Dates: start: 19990301, end: 20050101
  2. FOSAMAX [Suspect]
     Route: 048
     Dates: start: 19970101
  3. FOSAMAX PLUS D [Suspect]
     Indication: OSTEOPOROSIS
     Route: 048
     Dates: start: 20050101, end: 20070701

REACTIONS (24)
  - ABSCESS [None]
  - ANXIETY [None]
  - ARTHRODESIS [None]
  - BIPOLAR DISORDER [None]
  - DENTAL CARIES [None]
  - DEPRESSION [None]
  - DRUG HYPERSENSITIVITY [None]
  - FALL [None]
  - FEMUR FRACTURE [None]
  - GALLBLADDER DISORDER [None]
  - GINGIVAL INFECTION [None]
  - GINGIVITIS [None]
  - HYPERCHOLESTEROLAEMIA [None]
  - INSOMNIA [None]
  - JAW DISORDER [None]
  - OEDEMA MOUTH [None]
  - ORAL INFECTION [None]
  - OSTEOARTHRITIS [None]
  - OSTEONECROSIS [None]
  - PANCREATITIS [None]
  - PERIODONTAL DISEASE [None]
  - RADIUS FRACTURE [None]
  - RASH MACULAR [None]
  - ROTATOR CUFF SYNDROME [None]
